FAERS Safety Report 7615592-9 (Version None)
Quarter: 2011Q3

REPORT INFORMATION
  Report Type: 
  Country: None (occurrence: None)
  Receive Date: 20110708
  Receipt Date: 20110526
  Transmission Date: 20111222
  Serious: No
  Sender: FDA-Public Use
  Company Number: 2011IP000102

PATIENT
  Age: 85 Year
  Sex: Female

DRUGS (4)
  1. BEPREVE [Suspect]
     Indication: EYE PRURITUS
     Dosage: 1 GTT;BID;OPH
     Route: 047
     Dates: start: 20110501
  2. BEPREVE [Suspect]
     Indication: HYPERSENSITIVITY
     Dosage: 1 GTT;BID;OPH
     Route: 047
     Dates: start: 20110501
  3. MULTI-VITAMIN [Concomitant]
  4. OCUSOFT EYE WASH [Concomitant]

REACTIONS (1)
  - DIZZINESS [None]
